FAERS Safety Report 9927303 (Version 2)
Quarter: 2014Q1

REPORT INFORMATION
  Report Type: Report from Study
  Country: JP (occurrence: JP)
  Receive Date: 20140226
  Receipt Date: 20140226
  Transmission Date: 20141002
  Serious: Yes (Hospitalization)
  Sender: FDA-Public Use
  Company Number: JP-ABBVIE-12P-087-1023309-00

PATIENT
  Age: 35 Year
  Sex: Female

DRUGS (6)
  1. LEUPLIN SR [Suspect]
     Indication: BREAST CANCER
     Route: 058
     Dates: start: 20111205, end: 20120528
  2. LEUPLIN SR [Suspect]
     Route: 058
     Dates: start: 20121119
  3. HERCEPTIN [Concomitant]
     Indication: BREAST CANCER
     Route: 050
     Dates: start: 20111107, end: 20111127
  4. HERCEPTIN [Concomitant]
     Route: 050
     Dates: start: 20111128, end: 20120528
  5. TAMOXIFEN CITRATE [Concomitant]
     Indication: BREAST CANCER
     Route: 048
     Dates: start: 20111031
  6. ANTHRACYCLINES AND RELATED SUBSTANCES [Concomitant]
     Indication: PRODUCT USED FOR UNKNOWN INDICATION

REACTIONS (1)
  - Cardiac failure [Recovering/Resolving]
